FAERS Safety Report 4757429-1 (Version None)
Quarter: 2005Q3

REPORT INFORMATION
  Report Type: 
  Country: None (occurrence: None)
  Receive Date: 20050829
  Receipt Date: 20050816
  Transmission Date: 20060218
  Serious: Yes (Life-Threatening, Hospitalization, Congenital Anomaly, Other)
  Sender: FDA-Public Use
  Company Number: 2005116629

PATIENT
  Age: 27 Month
  Sex: Male
  Weight: 4.1277 kg

DRUGS (2)
  1. DEPO-PROVERA [Suspect]
     Indication: CONTRACEPTION
     Dosage: (1ST INJECTION/ 3 MONTHS) , INTRAMUSCULAR (LAST INJECTION), INTRAMUSCULAR
     Route: 030
     Dates: start: 20000630, end: 20000630
  2. DEPO-PROVERA [Suspect]
     Indication: CONTRACEPTION
     Dosage: (1ST INJECTION/ 3 MONTHS) , INTRAMUSCULAR (LAST INJECTION), INTRAMUSCULAR
     Route: 030
     Dates: start: 20011101, end: 20011101

REACTIONS (4)
  - ASTHMA [None]
  - COLLAPSE OF LUNG [None]
  - DRUG EXPOSURE DURING PREGNANCY [None]
  - VENTRICULAR SEPTAL DEFECT [None]
